FAERS Safety Report 23185786 (Version 1)
Quarter: 2023Q4

REPORT INFORMATION
  Report Type: Spontaneous
  Country: US (occurrence: US)
  Receive Date: 20231115
  Receipt Date: 20231115
  Transmission Date: 20240110
  Serious: No
  Sender: FDA-Public Use
  Company Number: US-OTSUKA-2023_027108

PATIENT
  Age: 69 Year
  Sex: Female
  Weight: 73.48 kg

DRUGS (1)
  1. NUEDEXTA [Suspect]
     Active Substance: DEXTROMETHORPHAN HYDROBROMIDE\QUINIDINE SULFATE
     Indication: Amyotrophic lateral sclerosis
     Dosage: 1 DF (20-10 MG), BID (TWICE DAILY)
     Route: 065
     Dates: start: 202207

REACTIONS (3)
  - Platelet count decreased [Unknown]
  - Product use in unapproved indication [Unknown]
  - Wrong technique in product usage process [Unknown]

NARRATIVE: CASE EVENT DATE: 20220701
